FAERS Safety Report 9314252 (Version 2)
Quarter: 2013Q2

REPORT INFORMATION
  Report Type: Report from Study
  Country: CA (occurrence: CA)
  Receive Date: 20130529
  Receipt Date: 20130621
  Transmission Date: 20140414
  Serious: Yes (Other)
  Sender: FDA-Public Use
  Company Number: PHHY2013CA053504

PATIENT
  Sex: Female

DRUGS (6)
  1. GILENYA [Suspect]
     Indication: RELAPSING-REMITTING MULTIPLE SCLEROSIS
     Dosage: 0.5 MG, QD
     Route: 048
     Dates: start: 20121211, end: 201301
  2. GILENYA [Suspect]
     Dosage: 0.5 MG, QOD
     Route: 048
     Dates: start: 201301, end: 20130522
  3. LYRICA [Concomitant]
  4. WELLBUTRIN [Concomitant]
  5. EFFEXOR [Concomitant]
  6. VITAMIN D [Concomitant]

REACTIONS (2)
  - Uveitis [Unknown]
  - Macular oedema [Unknown]
